FAERS Safety Report 10312739 (Version 2)
Quarter: 2014Q3

REPORT INFORMATION
  Report Type: Spontaneous
  Country: US (occurrence: US)
  Receive Date: 20140718
  Receipt Date: 20140718
  Transmission Date: 20150326
  Serious: No
  Sender: FDA-Public Use
  Company Number: US-DRREDDYS-USA/USA/14/0039946

PATIENT
  Age: 17 Year
  Sex: Male

DRUGS (1)
  1. ZENATANE [Suspect]
     Active Substance: ISOTRETINOIN
     Indication: ACNE
     Route: 048
     Dates: start: 20140215

REACTIONS (4)
  - Eczema [Recovering/Resolving]
  - Upper-airway cough syndrome [Recovering/Resolving]
  - Epistaxis [Recovered/Resolved]
  - Nasal dryness [Recovering/Resolving]
